FAERS Safety Report 5988775-1 (Version None)
Quarter: 2008Q4

REPORT INFORMATION
  Report Type: 
  Country: None (occurrence: None)
  Receive Date: 20081210
  Receipt Date: 20081208
  Transmission Date: 20090506
  Serious: Yes (Life-Threatening)
  Sender: FDA-Public Use
  Company Number: PHHY2008DE28705

PATIENT
  Sex: Female
  Weight: 67 kg

DRUGS (3)
  1. RASILEZ [Suspect]
     Indication: ARRHYTHMIA
     Dosage: 150 MG/D
     Dates: start: 20080711, end: 20081104
  2. RASILEZ [Suspect]
     Indication: BRADYCARDIA
  3. RASILEZ [Suspect]
     Indication: ATRIAL FIBRILLATION

REACTIONS (4)
  - ARRHYTHMIA [None]
  - ATRIAL FIBRILLATION [None]
  - SUPRAVENTRICULAR TACHYCARDIA [None]
  - VENTRICULAR EXTRASYSTOLES [None]
